FAERS Safety Report 18162780 (Version 1)
Quarter: 2020Q3

REPORT INFORMATION
  Report Type: Spontaneous
  Country: US (occurrence: US)
  Receive Date: 20200818
  Receipt Date: 20200818
  Transmission Date: 20201103
  Serious: Yes (Death)
  Sender: FDA-Public Use
  Company Number: None

PATIENT
  Age: 65 Year
  Sex: Female

DRUGS (8)
  1. RIBAVIRIN 200 MG [Suspect]
     Active Substance: RIBAVIRIN
     Indication: CHRONIC HEPATITIS C
     Route: 048
  2. POTASSIUM CHLORIDE. [Concomitant]
     Active Substance: POTASSIUM CHLORIDE
  3. HYDRALAZINE [Concomitant]
     Active Substance: HYDRALAZINE HYDROCHLORIDE
  4. OMEPRAZOLE. [Concomitant]
     Active Substance: OMEPRAZOLE
  5. FUROSEMIDE. [Concomitant]
     Active Substance: FUROSEMIDE
  6. DIAZEPAM. [Concomitant]
     Active Substance: DIAZEPAM
  7. RAMIPRIL. [Concomitant]
     Active Substance: RAMIPRIL
  8. LEDIPASVIR AND SOFOSBUVIR [Suspect]
     Active Substance: LEDIPASVIR\SOFOSBUVIR
     Indication: CHRONIC HEPATITIS C
     Route: 048

REACTIONS (8)
  - Eye haemorrhage [None]
  - Abdominal pain upper [None]
  - Mouth haemorrhage [None]
  - Cardiac arrest [None]
  - Hepatic cirrhosis [None]
  - Rectal haemorrhage [None]
  - Vaginal haemorrhage [None]
  - Back pain [None]

NARRATIVE: CASE EVENT DATE: 20200726
